FAERS Safety Report 12319563 (Version 1)
Quarter: 2016Q2

REPORT INFORMATION
  Report Type: Spontaneous
  Country: US (occurrence: US)
  Receive Date: 20160429
  Receipt Date: 20160429
  Transmission Date: 20160815
  Serious: No
  Sender: FDA-Public Use
  Company Number: US-ROCHE-1617406

PATIENT
  Age: 76 Year
  Sex: Female

DRUGS (2)
  1. CPT-11 [Concomitant]
     Active Substance: IRINOTECAN
     Route: 065
  2. AVASTIN [Suspect]
     Active Substance: BEVACIZUMAB
     Indication: COLORECTAL CANCER METASTATIC
     Route: 065

REACTIONS (2)
  - Asthenia [Unknown]
  - Nervous system disorder [Unknown]
